FAERS Safety Report 11660545 (Version 1)
Quarter: 2015Q4

REPORT INFORMATION
  Report Type: Spontaneous
  Country: US (occurrence: None)
  Receive Date: 20151023
  Receipt Date: 20151023
  Transmission Date: 20160304
  Serious: Yes (Hospitalization)
  Sender: FDA-Public Use
  Company Number: None

PATIENT
  Age: 58 Year
  Sex: Male
  Weight: 106.7 kg

DRUGS (2)
  1. INDOMETHACIN. [Suspect]
     Active Substance: INDOMETHACIN
     Indication: ACUTE KIDNEY INJURY
     Route: 048
     Dates: start: 20070605, end: 20110715
  2. INDOMETHACIN. [Suspect]
     Active Substance: INDOMETHACIN
     Indication: BLOOD UREA INCREASED
     Route: 048
     Dates: start: 20070605, end: 20110715

REACTIONS (1)
  - Acute kidney injury [None]

NARRATIVE: CASE EVENT DATE: 20110715
